FAERS Safety Report 5367320-8 (Version None)
Quarter: 2007Q2

REPORT INFORMATION
  Report Type: 
  Country: None (occurrence: None)
  Receive Date: 20070622
  Receipt Date: 20060329
  Transmission Date: 20071010
  Serious: No
  Sender: FDA-Public Use
  Company Number: US-ASTRAZENECA-2006UW05510

PATIENT
  Age: 3 Year
  Sex: Female
  Weight: 17.7 kg

DRUGS (5)
  1. PULMICORT RESPULES [Suspect]
     Indication: ASTHMA
     Route: 055
     Dates: start: 20060301
  2. XOPENEX [Concomitant]
  3. SINGULAIR [Concomitant]
  4. BROMETANE [Concomitant]
  5. ZITHROMAX [Concomitant]

REACTIONS (1)
  - PALLOR [None]
